FAERS Safety Report 8475712-3 (Version None)
Quarter: 2012Q2

REPORT INFORMATION
  Report Type: 
  Country: None (occurrence: None)
  Receive Date: 20120628
  Receipt Date: 20120621
  Transmission Date: 20120825
  Serious: Yes (Hospitalization)
  Sender: FDA-Public Use
  Company Number: US-GLAXOSMITHKLINE-A0982597A

PATIENT
  Sex: Male

DRUGS (3)
  1. LOVAZA [Suspect]
     Dosage: 1G UNKNOWN
     Route: 065
     Dates: start: 20111010
  2. ADVAIR DISKUS 100/50 [Suspect]
     Route: 065
     Dates: start: 20111010
  3. COREG CR [Suspect]
     Dosage: 20MG UNKNOWN
     Route: 065
     Dates: start: 20111225

REACTIONS (3)
  - RENAL FAILURE ACUTE [None]
  - SPLEEN DISORDER [None]
  - GALLBLADDER DISORDER [None]
